FAERS Safety Report 18368259 (Version 1)
Quarter: 2020Q4

REPORT INFORMATION
  Report Type: Spontaneous
  Country: FR (occurrence: FR)
  Receive Date: 20201009
  Receipt Date: 20201009
  Transmission Date: 20210114
  Serious: Yes (Hospitalization)
  Sender: FDA-Public Use
  Company Number: FR-009507513-2010FRA002321

PATIENT
  Age: 93 Year
  Sex: Female
  Weight: 85 kg

DRUGS (8)
  1. FLUOXETINE HYDROCHLORIDE. [Concomitant]
     Active Substance: FLUOXETINE HYDROCHLORIDE
  2. INVANZ [Suspect]
     Active Substance: ERTAPENEM SODIUM
     Indication: PYELONEPHRITIS
     Dosage: 2 GRAM, QD
     Route: 042
     Dates: start: 20200810, end: 20200818
  3. PULMICORT TURBUHALER [Concomitant]
     Active Substance: BUDESONIDE
  4. MONTELUKAST SODIUM. [Concomitant]
     Active Substance: MONTELUKAST SODIUM
  5. ELIQUIS [Concomitant]
     Active Substance: APIXABAN
  6. LEVOTHYROX [Concomitant]
     Active Substance: LEVOTHYROXINE
  7. INDAPAMIDE. [Concomitant]
     Active Substance: INDAPAMIDE
  8. SPIRIVA [Concomitant]
     Active Substance: TIOTROPIUM BROMIDE MONOHYDRATE

REACTIONS (2)
  - Confusional state [Recovered/Resolved]
  - Seizure [Recovered/Resolved]

NARRATIVE: CASE EVENT DATE: 20200818
